FAERS Safety Report 7817733 (Version 8)
Quarter: 2013Q4

REPORT INFORMATION
  Report Type: Report from Study
  Country: AU (occurrence: AU)
  Receive Date: 20110217
  Receipt Date: 20131218
  Transmission Date: 20140711
  Serious: Yes (Other)
  Sender: FDA-Public Use
  Company Number: AU-CELGENEUS-008-C5013-11022008

PATIENT
  Age: 74 Year
  Sex: Male
  Weight: 86 kg

DRUGS (10)
  1. CC-5013 [Suspect]
     Indication: PLASMA CELL MYELOMA
     Route: 048
     Dates: start: 20090210, end: 20091103
  2. MELPHALAN [Suspect]
     Indication: PLASMA CELL MYELOMA
     Route: 065
     Dates: start: 20070306, end: 20071110
  3. PREDNISONE [Suspect]
     Indication: PLASMA CELL MYELOMA
     Route: 065
     Dates: start: 20070306, end: 20071110
  4. PLACEBO FOR CC-5013 [Suspect]
     Indication: PLASMA CELL MYELOMA
     Route: 048
     Dates: start: 20070306, end: 20090204
  5. RAMIPRIL [Concomitant]
     Indication: MYOCARDIAL INFARCTION
     Route: 065
     Dates: start: 2001, end: 20090129
  6. ASPIRINE [Concomitant]
     Indication: EMBOLISM
     Route: 065
     Dates: start: 2004, end: 20090324
  7. PAMIDRONATE [Concomitant]
     Indication: PLASMA CELL MYELOMA
     Route: 065
     Dates: start: 20070306, end: 200911
  8. LACTULOSE [Concomitant]
     Indication: CONSTIPATION
     Route: 065
     Dates: start: 20070320, end: 20070417
  9. ASPIRIN DIPYRIDAMOLE [Concomitant]
     Indication: THROMBOSIS PROPHYLAXIS
     Route: 065
     Dates: start: 20040324
  10. LEVETIRACETAM [Concomitant]
     Indication: HEMIPARESIS
     Route: 065
     Dates: start: 20091016

REACTIONS (2)
  - Lentigo maligna [Recovered/Resolved]
  - Lentigo maligna [Recovered/Resolved]
